FAERS Safety Report 13703032 (Version 1)
Quarter: 2017Q2

REPORT INFORMATION
  Report Type: Spontaneous
  Country: US (occurrence: US)
  Receive Date: 20170629
  Receipt Date: 20170629
  Transmission Date: 20170830
  Serious: Yes (Hospitalization)
  Sender: FDA-Public Use
  Company Number: US-MALLINCKRODT-T201702627

PATIENT
  Sex: Female

DRUGS (2)
  1. GABLOFEN [Suspect]
     Active Substance: BACLOFEN
     Indication: CEREBRAL PALSY
     Dosage: 200 MCG/DAY
     Route: 037
  2. GABLOFEN [Suspect]
     Active Substance: BACLOFEN
     Indication: MUSCLE SPASTICITY
     Dosage: 300 MCG/DAY
     Route: 037

REACTIONS (5)
  - Acidosis [Unknown]
  - Hypercapnia [Unknown]
  - Atelectasis [Unknown]
  - Device issue [Unknown]
  - Overdose [Not Recovered/Not Resolved]
